FAERS Safety Report 5009511-1 (Version None)
Quarter: 2006Q2

REPORT INFORMATION
  Report Type: 
  Country: None (occurrence: None)
  Receive Date: 20060522
  Receipt Date: 20030511
  Transmission Date: 20061013
  Serious: Yes (Other)
  Sender: FDA-Public Use
  Company Number: 2006-05-0898

PATIENT
  Sex: 0

DRUGS (4)
  1. PROCRIT [Suspect]
     Indication: ANAEMIA OF CHRONIC DISEASE
  2. INTERFERON [Suspect]
     Indication: HEPATITIS C
  3. RIBAVIRIN [Suspect]
     Indication: HEPATITIS C
     Dosage: ORAL
     Route: 048
  4. INFERGEN [Suspect]
     Indication: HEPATITIS C

REACTIONS (3)
  - ANAEMIA [None]
  - PORPHYRIA NON-ACUTE [None]
  - SERUM FERRITIN INCREASED [None]
